FAERS Safety Report 21977341 (Version 2)
Quarter: 2023Q1

REPORT INFORMATION
  Report Type: Other
  Country: PK (occurrence: None)
  Receive Date: 20230210
  Receipt Date: 20230217
  Transmission Date: 20230418
  Serious: Yes (Death)
  Sender: FDA-Public Use
  Company Number: PK-ROCHE-3281619

PATIENT
  Sex: Female

DRUGS (2)
  1. RITUXIMAB [Suspect]
     Active Substance: RITUXIMAB
     Indication: Diffuse large B-cell lymphoma
     Dosage: RISTOVA THERAPY FOR 08 CYCLES, 3 WEEKLY -AS PER PROTOCOL?TOTAL 03 NUMBER OF CYCLES ADMINISTERED.
     Route: 042
     Dates: start: 20221213, end: 20230103
  2. RITUXIMAB [Suspect]
     Active Substance: RITUXIMAB
     Route: 042
     Dates: start: 20221213, end: 20230103

REACTIONS (2)
  - Blood pressure decreased [Fatal]
  - Blood glucose decreased [Fatal]
